FAERS Safety Report 19466982 (Version 1)
Quarter: 2021Q2

REPORT INFORMATION
  Report Type: Spontaneous
  Country: US (occurrence: US)
  Receive Date: 20210628
  Receipt Date: 20210628
  Transmission Date: 20210717
  Serious: Yes (Other)
  Sender: FDA-Public Use
  Company Number: US-AUROBINDO-AUR-APL-2021-026993

PATIENT
  Age: 54 Year
  Sex: Female

DRUGS (2)
  1. ACETYLCYSTEINE. [Suspect]
     Active Substance: ACETYLCYSTEINE
     Indication: COAGULOPATHY
     Dosage: UNK
     Route: 065
  2. PHYTONADIONE. [Suspect]
     Active Substance: PHYTONADIONE
     Indication: COAGULOPATHY
     Dosage: UNK
     Route: 042

REACTIONS (1)
  - Drug ineffective [Unknown]
